FAERS Safety Report 8414163-4 (Version None)
Quarter: 2012Q2

REPORT INFORMATION
  Report Type: 
  Country: None (occurrence: None)
  Receive Date: 20120605
  Receipt Date: 20120601
  Transmission Date: 20120825
  Serious: Yes (Hospitalization)
  Sender: FDA-Public Use
  Company Number: PR-ABBOTT-12P-131-0939409-00

PATIENT
  Age: 43 Year
  Sex: Male
  Weight: 66.738 kg

DRUGS (6)
  1. LOVAZA [Concomitant]
     Indication: HYPERTRIGLYCERIDAEMIA
     Route: 048
     Dates: start: 20120101
  2. ANDROGEL [Suspect]
     Dosage: 1 APPLICATION ON EACH ARMPIT X3
     Route: 061
     Dates: start: 20120518, end: 20120520
  3. ALTACE [Concomitant]
     Indication: HYPERTENSION
     Route: 048
     Dates: start: 20000101
  4. SYNTHROID [Concomitant]
     Indication: THYROID DISORDER
     Route: 048
     Dates: start: 20100101
  5. HUMALOG INSULINE WITH PUMP INFUSION [Concomitant]
     Indication: DIABETES MELLITUS
     Route: 058
     Dates: start: 20000101
  6. ANDROGEL [Suspect]
     Indication: BLOOD TESTOSTERONE DECREASED
     Dosage: 1 APPLICATION ON EACH ARMPIT X2
     Route: 061
     Dates: start: 20120401, end: 20120517

REACTIONS (1)
  - IDIOPATHIC THROMBOCYTOPENIC PURPURA [None]
